FAERS Safety Report 6525503-5 (Version None)
Quarter: 2010Q1

REPORT INFORMATION
  Report Type: 
  Country: None (occurrence: None)
  Receive Date: 20100104
  Receipt Date: 20091221
  Transmission Date: 20100710
  Serious: Yes (Hospitalization)
  Sender: FDA-Public Use
  Company Number: DK-PFIZER INC-2009312360

PATIENT
  Age: 43 Year
  Sex: Male
  Weight: 175 kg

DRUGS (2)
  1. ZARATOR [Suspect]
     Indication: BLOOD CHOLESTEROL INCREASED
     Dosage: 40 MG, 1X/DAY
     Route: 048
     Dates: start: 20091120
  2. ORLISTAT [Concomitant]
     Indication: OVERWEIGHT
     Dosage: 60 MG, 1X/DAY
     Route: 048
     Dates: start: 20090601

REACTIONS (1)
  - CONVULSION [None]
